FAERS Safety Report 8718027 (Version 7)
Quarter: 2014Q4

REPORT INFORMATION
  Report Type: Spontaneous
  Country: JP (occurrence: None)
  Receive Date: 20120726
  Receipt Date: 20141218
  Transmission Date: 20150529
  Serious: Yes (Other)
  Sender: FDA-Public Use
  Company Number: 2010JP002726

PATIENT
  Age: 57 Year
  Sex: Female
  Weight: 52 kg

DRUGS (26)
  1. WARFARIN SODIUM. [Concomitant]
     Active Substance: WARFARIN SODIUM
  2. MYSLEE (ZOLPIDEM) [Concomitant]
  3. OMEPRAZOLE. [Concomitant]
     Active Substance: OMEPRAZOLE
  4. PREDNISOLONE. [Suspect]
     Active Substance: PREDNISOLONE
     Indication: LUPUS NEPHRITIS
     Route: 048
     Dates: end: 20080514
  5. CANDESARTAN CILEXETIL. [Concomitant]
     Active Substance: CANDESARTAN CILEXETIL
  6. EDIROL (ELDECALITOL) [Concomitant]
  7. FERROMIA (SODIUM FERROUS CITRATE) [Concomitant]
  8. DEPAS (ETIZOLAM) [Concomitant]
  9. ALFAROL [Concomitant]
     Active Substance: ALFACALCIDOL
  10. GASMOTIN (MOSAPRIDE CITRATE) [Concomitant]
     Active Substance: MOSAPRIDE CITRATE
  11. BAYASPIRIN (ASPIRIN) [Concomitant]
     Active Substance: ASPIRIN
  12. ALLOPURINOL. [Concomitant]
     Active Substance: ALLOPURINOL
  13. FAMOGAST (FAMOTIDINE) [Concomitant]
  14. CONIEL (BENIDIPINE HYDROCHLORIDE) (BENIDIPINE HYDROCHLORIDE) [Concomitant]
     Active Substance: BENIDIPINE HYDROCHLORIDE
  15. LASIX [Concomitant]
     Active Substance: FUROSEMIDE
  16. TACROLIMUS. [Suspect]
     Active Substance: TACROLIMUS
     Indication: LUPUS NEPHRITIS
     Route: 048
     Dates: start: 20080416, end: 20080424
  17. ROHYPNOL (FLUNITRAZEPAM) [Concomitant]
     Active Substance: FLUNITRAZEPAM
  18. METHYLPREDNISOLONE. [Concomitant]
     Active Substance: METHYLPREDNISOLONE
     Indication: LUPUS NEPHRITIS
     Route: 041
     Dates: start: 20130717, end: 20130719
  19. DESYREL [Concomitant]
     Active Substance: TRAZODONE HYDROCHLORIDE
  20. MAGMITT (MAGNESIUM OXIDE) [Concomitant]
     Active Substance: MAGNESIUM OXIDE
  21. CRESTOR [Concomitant]
     Active Substance: ROSUVASTATIN CALCIUM
  22. RABEPRAZOLE SODIUM. [Concomitant]
     Active Substance: RABEPRAZOLE SODIUM
  23. LAXOBERON (SODIUM PICOSULFATE HYDRATE) [Concomitant]
  24. CELECOX (CELECOXIB) [Concomitant]
     Active Substance: CELECOXIB
  25. LOXONIN (LOXOPROFEN SODIUM HYDRATE) [Concomitant]
  26. LYRICA [Concomitant]
     Active Substance: PREGABALIN

REACTIONS (4)
  - Hypertension [None]
  - Constipation [None]
  - Fibromyalgia [None]
  - Beta-N-acetyl-D-glucosaminidase increased [None]

NARRATIVE: CASE EVENT DATE: 20080515
